FAERS Safety Report 19840765 (Version 1)
Quarter: 2021Q3

REPORT INFORMATION
  Report Type: Spontaneous
  Country: CN (occurrence: CN)
  Receive Date: 20210916
  Receipt Date: 20210916
  Transmission Date: 20211014
  Serious: Yes (Other)
  Sender: FDA-Public Use
  Company Number: CN-009507513-2109CHN002084

PATIENT
  Age: 68 Year
  Sex: Male
  Weight: 65 kg

DRUGS (7)
  1. DOXOFYLLINE [Concomitant]
     Active Substance: DOXOFYLLINE
     Indication: PNEUMONIA
     Dosage: 0.2 G, BID
     Route: 041
     Dates: start: 20210809, end: 20210902
  2. SODIUM CHLORIDE. [Concomitant]
     Active Substance: SODIUM CHLORIDE
     Dosage: 100 ML, BID
     Route: 041
     Dates: start: 20210809, end: 20210902
  3. SODIUM CHLORIDE. [Concomitant]
     Active Substance: SODIUM CHLORIDE
     Dosage: 100 ML, Q12H
     Route: 041
     Dates: start: 20210810, end: 20210811
  4. TIENAM [Suspect]
     Active Substance: CILASTATIN SODIUM\IMIPENEM
     Dosage: 1 G, Q12H
     Route: 041
     Dates: start: 20210810, end: 20210811
  5. ATORVASTATIN CALCIUM. [Concomitant]
     Active Substance: ATORVASTATIN CALCIUM
     Indication: ILL-DEFINED DISORDER
     Dosage: 20 MG, ONCE A DAY
     Route: 045
     Dates: start: 20210808, end: 20210902
  6. SODIUM CHLORIDE. [Concomitant]
     Active Substance: SODIUM CHLORIDE
     Indication: PNEUMONIA
     Dosage: 100 ML, Q8H
     Route: 041
     Dates: start: 20210808, end: 20210809
  7. TIENAM [Suspect]
     Active Substance: CILASTATIN SODIUM\IMIPENEM
     Indication: PNEUMONIA
     Dosage: 1 G, Q8H
     Route: 041
     Dates: start: 20210808, end: 20210809

REACTIONS (3)
  - Cerebral infarction [Recovering/Resolving]
  - Inappropriate schedule of product administration [Unknown]
  - Drug ineffective [Unknown]

NARRATIVE: CASE EVENT DATE: 20210810
